FAERS Safety Report 4328748-8 (Version None)
Quarter: 2004Q1

REPORT INFORMATION
  Report Type: 
  Country: None (occurrence: None)
  Receive Date: 20040329
  Receipt Date: 20040116
  Transmission Date: 20041129
  Serious: Yes (Hospitalization)
  Sender: FDA-Public Use
  Company Number: 04P-163-0247722-00

PATIENT
  Age: 71 Year
  Sex: Female
  Weight: 46.7205 kg

DRUGS (6)
  1. HUMIRA [Suspect]
     Indication: RHEUMATOID ARTHRITIS
     Dosage: 40 MG, 1 IN 2 WK, SUBCUTANEOUS
     Route: 058
     Dates: start: 20030801
  2. METHYLPREDNISOLONE [Concomitant]
  3. CIMETIDINE HCL [Concomitant]
  4. ATENOLOL [Concomitant]
  5. PROPACET 100 [Concomitant]
  6. ALPRAZOLAM [Concomitant]

REACTIONS (3)
  - HYPOAESTHESIA [None]
  - INJECTION SITE HAEMORRHAGE [None]
  - MUSCLE SPASMS [None]
